FAERS Safety Report 18126379 (Version 2)
Quarter: 2020Q3

REPORT INFORMATION
  Report Type: Spontaneous
  Country: US (occurrence: US)
  Receive Date: 20200808
  Receipt Date: 20200810
  Transmission Date: 20201103
  Serious: No
  Sender: FDA-Public Use
  Company Number: US-SA-2020SA201693

PATIENT

DRUGS (2)
  1. LANTUS SOLOSTAR [Suspect]
     Active Substance: INSULIN GLARGINE
     Indication: TYPE 2 DIABETES MELLITUS
     Dosage: 35 IU, HS
     Route: 065
     Dates: start: 20191128
  2. HUMALOG [Concomitant]
     Active Substance: INSULIN LISPRO
     Dosage: 6IU AFTER BREAKFAS/LUNCH/DINNER
     Route: 065

REACTIONS (1)
  - Cardiac operation [Unknown]
